FAERS Safety Report 7709873 (Version 7)
Quarter: 2014Q3

REPORT INFORMATION
  Report Type: Spontaneous
  Country: US (occurrence: US)
  Receive Date: 20101214
  Receipt Date: 20140702
  Transmission Date: 20150326
  Serious: Yes (Hospitalization, Other)
  Sender: FDA-Public Use
  Company Number: US-ASTRAZENECA-2010SE45301

PATIENT
  Age: 81 Year
  Sex: Female
  Weight: 112.9 kg

DRUGS (17)
  1. ATACAND [Suspect]
     Active Substance: CANDESARTAN CILEXETIL
     Indication: HEART RATE IRREGULAR
     Dosage: TWICE A DAY IF NEEDED
     Route: 048
  2. NEXIUM [Suspect]
     Active Substance: ESOMEPRAZOLE MAGNESIUM
     Indication: ABDOMINAL PAIN UPPER
     Dosage: PRN
     Route: 048
  3. ATACAND [Suspect]
     Active Substance: CANDESARTAN CILEXETIL
     Indication: CARDIAC DISORDER
     Dosage: TWICE A DAY IF NEEDED
     Route: 048
  4. NEXIUM [Suspect]
     Active Substance: ESOMEPRAZOLE MAGNESIUM
     Indication: GASTROOESOPHAGEAL REFLUX DISEASE
     Dosage: PRN
     Route: 048
  5. STATINS [Concomitant]
     Active Substance: UNSPECIFIED INGREDIENT
     Dosage: POSSIBLY 6 OR 7 YEARS AGO
  6. ATACAND [Suspect]
     Active Substance: CANDESARTAN CILEXETIL
     Indication: CARDIAC FAILURE
     Dosage: TWICE A DAY IF NEEDED
     Route: 048
  7. ATACAND [Suspect]
     Active Substance: CANDESARTAN CILEXETIL
     Indication: HYPERTENSION
     Route: 048
  8. ATACAND [Suspect]
     Active Substance: CANDESARTAN CILEXETIL
     Indication: CARDIAC FAILURE
     Route: 048
  9. CRESTOR [Suspect]
     Active Substance: ROSUVASTATIN CALCIUM
     Indication: BLOOD CHOLESTEROL INCREASED
     Route: 048
  10. NORVASC [Concomitant]
     Active Substance: AMLODIPINE BESYLATE
     Indication: HYPERTENSION
  11. ATACAND [Suspect]
     Active Substance: CANDESARTAN CILEXETIL
     Indication: HYPERTENSION
     Dosage: TWICE A DAY IF NEEDED
     Route: 048
  12. ATACAND [Suspect]
     Active Substance: CANDESARTAN CILEXETIL
     Indication: HEART RATE IRREGULAR
     Route: 048
  13. ATENOLOL. [Suspect]
     Active Substance: ATENOLOL
     Indication: CARDIAC DISORDER
     Route: 048
  14. VALIUM [Concomitant]
     Active Substance: DIAZEPAM
     Indication: ANGER
  15. ATENOLOL. [Suspect]
     Active Substance: ATENOLOL
     Indication: HYPERTENSION
     Route: 048
  16. UNKNOWN MEDICATION [Concomitant]
     Active Substance: UNSPECIFIED INGREDIENT
     Indication: HYPERTENSION
     Dosage: PRN
     Route: 048
  17. ATACAND [Suspect]
     Active Substance: CANDESARTAN CILEXETIL
     Indication: CARDIAC DISORDER
     Route: 048

REACTIONS (36)
  - Head injury [Unknown]
  - Activities of daily living impaired [Unknown]
  - Dyspnoea [Unknown]
  - Drug ineffective [Unknown]
  - Cataract [Unknown]
  - Concussion [Unknown]
  - Face injury [Unknown]
  - Cardiac failure [Not Recovered/Not Resolved]
  - Diarrhoea [Not Recovered/Not Resolved]
  - Hypertension [Unknown]
  - Panic attack [Unknown]
  - Depressed mood [Not Recovered/Not Resolved]
  - Intentional product misuse [Unknown]
  - Blindness [Unknown]
  - Large intestine polyp [Unknown]
  - Hearing impaired [Not Recovered/Not Resolved]
  - Deafness [Unknown]
  - Gait disturbance [Unknown]
  - Drug intolerance [Unknown]
  - Memory impairment [Unknown]
  - Off label use [Unknown]
  - Cerebrovascular accident [Unknown]
  - Malaise [Not Recovered/Not Resolved]
  - Extrasystoles [Unknown]
  - Sneezing [Not Recovered/Not Resolved]
  - Vertigo [Unknown]
  - Abdominal pain upper [Unknown]
  - Vomiting [Not Recovered/Not Resolved]
  - Visual impairment [Not Recovered/Not Resolved]
  - Nausea [Not Recovered/Not Resolved]
  - Headache [Not Recovered/Not Resolved]
  - Drug dose omission [Unknown]
  - Accident [Not Recovered/Not Resolved]
  - Eye injury [Not Recovered/Not Resolved]
  - Body height decreased [Unknown]
  - Confusional state [Unknown]

NARRATIVE: CASE EVENT DATE: 201301
